FAERS Safety Report 11672696 (Version 1)
Quarter: 2015Q4

REPORT INFORMATION
  Report Type: Spontaneous
  Country: US (occurrence: None)
  Receive Date: 20151027
  Receipt Date: 20151027
  Transmission Date: 20160304
  Serious: No
  Sender: FDA-Public Use
  Company Number: None

PATIENT
  Age: 56 Year
  Sex: Female
  Weight: 104.33 kg

DRUGS (13)
  1. JANUVIA [Suspect]
     Active Substance: SITAGLIPTIN PHOSPHATE
     Indication: BLOOD GLUCOSE INCREASED
     Route: 048
     Dates: start: 20150820, end: 20151025
  2. LISINOPRIL. [Concomitant]
     Active Substance: LISINOPRIL
  3. YOUNGEVITY SELENIUM [Concomitant]
  4. YOUGEVITY ULTIMATE MINERAL [Concomitant]
  5. YOUNGEVITY E.F.A. [Concomitant]
  6. GNC PROBIOTIC [Concomitant]
  7. DR. CHI^S ORGANIC GERMANIUM [Concomitant]
  8. METFORMIN [Concomitant]
     Active Substance: METFORMIN HYDROCHLORIDE
  9. GNC MILK THISTLE [Concomitant]
  10. HERBAL HEALER COD LIVER OIL [Concomitant]
  11. YOUGEVITY OXYBODY [Concomitant]
  12. GNC HEALTHY HAIR, NAILS, YOUGEVITY ULTIMATE CLASSIC [Concomitant]
  13. YOUGEVITY ULTIMATE CALCIUM [Concomitant]

REACTIONS (1)
  - Upper respiratory tract infection [None]

NARRATIVE: CASE EVENT DATE: 20151026
